FAERS Safety Report 8911525 (Version 2)
Quarter: 2013Q1

REPORT INFORMATION
  Report Type: Spontaneous
  Country: US (occurrence: US)
  Receive Date: 20121115
  Receipt Date: 20130219
  Transmission Date: 20140127
  Serious: No
  Sender: FDA-Public Use
  Company Number: US-PFIZER INC-2012284893

PATIENT
  Age: 47 Year
  Sex: Male
  Weight: 95.24 kg

DRUGS (9)
  1. ATORVASTATIN CALCIUM [Suspect]
     Indication: BLOOD CHOLESTEROL INCREASED
     Dosage: 10 MG, DAILY
     Dates: start: 201209
  2. AMLODIPINE BESILATE [Suspect]
     Indication: HYPERTENSION
     Dosage: 10 MG, DAILY
     Route: 048
     Dates: start: 201112
  3. AMLODIPINE BESILATE [Suspect]
     Dosage: 5 MG, DAILY
     Route: 048
     Dates: start: 20120731
  4. IBUPROFEN [Concomitant]
     Indication: ARTHRITIS
     Dosage: 800 MG, 4X/DAY
  5. GABAPENTIN [Concomitant]
     Dosage: 600 MG, 4X/DAY
  6. CITALOPRAM [Concomitant]
     Dosage: 40 MG, DAILY
  7. TRAZODONE [Concomitant]
     Dosage: 50 MG, DAILY
  8. BACLOFEN [Concomitant]
     Indication: MUSCLE SPASMS
     Dosage: 10 MG, 4X/DAY
  9. BENAZEPRIL [Concomitant]
     Indication: HYPERTENSION
     Dosage: 10 MG, DAILY
     Dates: start: 2012

REACTIONS (3)
  - Oedema peripheral [Recovered/Resolved]
  - Joint swelling [Recovered/Resolved]
  - Drug ineffective [Unknown]
